FAERS Safety Report 7557008-7 (Version None)
Quarter: 2011Q2

REPORT INFORMATION
  Report Type: 
  Country: None (occurrence: None)
  Receive Date: 20110620
  Receipt Date: 20110616
  Transmission Date: 20111010
  Serious: Yes (Life-Threatening, Hospitalization)
  Sender: FDA-Public Use
  Company Number: PHHY2011US33571

PATIENT
  Sex: Female

DRUGS (1)
  1. DIOVAN [Suspect]
     Route: 048

REACTIONS (5)
  - RENAL FAILURE [None]
  - HAEMATURIA [None]
  - NEOPLASM MALIGNANT [None]
  - BLADDER DISORDER [None]
  - RENAL CANCER [None]
